FAERS Safety Report 4924549-8 (Version None)
Quarter: 2006Q1

REPORT INFORMATION
  Report Type: 
  Country: None (occurrence: None)
  Receive Date: 20060227
  Receipt Date: 20060220
  Transmission Date: 20060701
  Serious: Yes (Hospitalization)
  Sender: FDA-Public Use
  Company Number: MX-BOEHRINGER INGELHEIM PHARMACEUTICALS, INC.-2006-BP-01878MX

PATIENT
  Age: 73 Year
  Sex: Male

DRUGS (2)
  1. SECOTEX CAPSULES 0.4MG [Suspect]
     Indication: PROSTATITIS
     Route: 048
     Dates: start: 20051105
  2. MACRODANTINA [Suspect]
     Indication: PROPHYLAXIS
     Route: 048

REACTIONS (2)
  - NEOPLASM PROSTATE [None]
  - OFF LABEL USE [None]
